FAERS Safety Report 5704888-3 (Version None)
Quarter: 2008Q2

REPORT INFORMATION
  Report Type: 
  Country: None (occurrence: None)
  Receive Date: 20080414
  Receipt Date: 20080403
  Transmission Date: 20081010
  Serious: Yes (Hospitalization)
  Sender: FDA-Public Use
  Company Number: US-AMGEN-QUU272922

PATIENT
  Sex: Male

DRUGS (1)
  1. ENBREL [Suspect]
     Indication: RHEUMATOID ARTHRITIS
     Route: 058
     Dates: start: 20010820

REACTIONS (6)
  - ANOREXIA [None]
  - BACK PAIN [None]
  - INFLUENZA [None]
  - ROTATOR CUFF SYNDROME [None]
  - VOMITING [None]
  - WEIGHT DECREASED [None]
